FAERS Safety Report 25653153 (Version 1)
Quarter: 2025Q3

REPORT INFORMATION
  Report Type: Other
  Country: GB (occurrence: GB)
  Receive Date: 20250807
  Receipt Date: 20250807
  Transmission Date: 20251020
  Serious: Yes (Disabling, Other)
  Sender: ASPEN
  Company Number: None

PATIENT

DRUGS (1)
  1. DEXAMETHASONE [Suspect]
     Active Substance: DEXAMETHASONE
     Indication: Meningioma benign
     Dosage: 16 MILLIGRAM, QID (16 MG X 4 TIMES A DAY  )
     Route: 065
     Dates: start: 20231122, end: 20240101

REACTIONS (3)
  - Medication error [Unknown]
  - Off label use [Unknown]
  - Muscle spasms [Recovered/Resolved with Sequelae]

NARRATIVE: CASE EVENT DATE: 20231122
